FAERS Safety Report 17193359 (Version 1)
Quarter: 2019Q4

REPORT INFORMATION
  Report Type: Spontaneous
  Country: CA (occurrence: CA)
  Receive Date: 20191223
  Receipt Date: 20191223
  Transmission Date: 20200122
  Serious: Yes (Death, Other)
  Sender: FDA-Public Use
  Company Number: CA-TEVA-2019-CA-1155294

PATIENT
  Age: 4 Year

DRUGS (3)
  1. ETOPOSIDE. [Suspect]
     Active Substance: ETOPOSIDE
     Indication: ADRENOLEUKODYSTROPHY
     Route: 065
  2. CYCLOPHOSPHAMIDE. [Suspect]
     Active Substance: CYCLOPHOSPHAMIDE
     Indication: ADRENOLEUKODYSTROPHY
     Route: 065
  3. RITUXIMAB. [Suspect]
     Active Substance: RITUXIMAB
     Indication: ADRENOLEUKODYSTROPHY
     Route: 065

REACTIONS (4)
  - Malignant neoplasm progression [Fatal]
  - Respiratory failure [Fatal]
  - Product use in unapproved indication [Fatal]
  - Encephalopathy [Fatal]
